FAERS Safety Report 11455858 (Version 1)
Quarter: 2015Q3

REPORT INFORMATION
  Report Type: Spontaneous
  Country: US (occurrence: US)
  Receive Date: 20150903
  Receipt Date: 20150903
  Transmission Date: 20151125
  Serious: No
  Sender: FDA-Public Use
  Company Number: US-GE HEALTHCARE MEDICAL DIAGNOSTICS-VISP-PR-1508S-0320

PATIENT
  Age: 48 Year
  Sex: Male

DRUGS (4)
  1. VISIPAQUE [Suspect]
     Active Substance: IODIXANOL
     Indication: DECREASED APPETITE
  2. VISIPAQUE [Suspect]
     Active Substance: IODIXANOL
     Indication: WEIGHT DECREASED
     Route: 042
     Dates: start: 20150803, end: 20150803
  3. VISIPAQUE [Suspect]
     Active Substance: IODIXANOL
     Indication: DIAGNOSTIC PROCEDURE
  4. VISIPAQUE [Suspect]
     Active Substance: IODIXANOL
     Indication: ABDOMINAL PAIN

REACTIONS (2)
  - Pruritus [Not Recovered/Not Resolved]
  - Erythema [Not Recovered/Not Resolved]

NARRATIVE: CASE EVENT DATE: 20150803
